FAERS Safety Report 26180861 (Version 1)
Quarter: 2025Q4

REPORT INFORMATION
  Report Type: Spontaneous
  Country: ZA (occurrence: ZA)
  Receive Date: 20251221
  Receipt Date: 20251221
  Transmission Date: 20260118
  Serious: Yes (Life-Threatening, Hospitalization)
  Sender: BAUSCH AND LOMB
  Company Number: ZA-BAUSCH-BH-2025-022319

PATIENT
  Age: 15 Year
  Sex: Male

DRUGS (3)
  1. ENALAPRIL [Suspect]
     Active Substance: ENALAPRIL
     Indication: Product used for unknown indication
  2. SIMVASTATIN [Suspect]
     Active Substance: SIMVASTATIN
     Indication: Product used for unknown indication
  3. AMLODIPINE [Suspect]
     Active Substance: AMLODIPINE BESYLATE
     Indication: Product used for unknown indication

REACTIONS (7)
  - Generalised tonic-clonic seizure [Recovered/Resolved]
  - Respiratory failure [Recovered/Resolved]
  - Shock [Recovered/Resolved]
  - Acute kidney injury [Recovered/Resolved]
  - Hypoglycaemia [Recovered/Resolved]
  - Pulmonary oedema [Recovered/Resolved]
  - Intentional overdose [Unknown]
